FAERS Safety Report 6341352-5 (Version None)
Quarter: 2009Q3

REPORT INFORMATION
  Report Type: 
  Country: None (occurrence: None)
  Receive Date: 20090904
  Receipt Date: 20090828
  Transmission Date: 20100115
  Serious: Yes (Hospitalization)
  Sender: FDA-Public Use
  Company Number: PHHO2009BE09796

PATIENT
  Sex: Male

DRUGS (7)
  1. RAD 666 RAD+TAB [Suspect]
     Indication: TRANSITIONAL CELL CARCINOMA
     Dosage: 12 MG
     Route: 048
     Dates: start: 20090709
  2. RAD 666 RAD+TAB [Suspect]
     Dosage: 10 MG, UNK
     Route: 048
     Dates: start: 20090806, end: 20090811
  3. LIPANTHYL [Concomitant]
     Indication: DYSLIPIDAEMIA
     Dosage: UNK
  4. DURAGESIC-100 [Concomitant]
     Indication: ABDOMINAL PAIN
     Dosage: UNK
  5. PLAVIX [Concomitant]
     Indication: PROPHYLAXIS
     Dosage: UNK
  6. CARDIOASPIRINE [Concomitant]
     Indication: ANGINA PECTORIS
     Dosage: UNK
  7. BRORVIZEPAM [Concomitant]
     Indication: INSOMNIA
     Dosage: UNK

REACTIONS (8)
  - CONSTIPATION [None]
  - FATIGUE [None]
  - GENERAL PHYSICAL CONDITION ABNORMAL [None]
  - HYPERCREATINAEMIA [None]
  - MALIGNANT NEOPLASM PROGRESSION [None]
  - NAUSEA [None]
  - PLEURAL EFFUSION [None]
  - VOMITING [None]
